FAERS Safety Report 14148864 (Version 1)
Quarter: 2017Q4

REPORT INFORMATION
  Report Type: Spontaneous
  Country: RU (occurrence: RU)
  Receive Date: 20171101
  Receipt Date: 20171101
  Transmission Date: 20180321
  Serious: Yes (Other)
  Sender: FDA-Public Use
  Company Number: RU-PFIZER INC-2017464062

PATIENT
  Age: 23 Year
  Sex: Male

DRUGS (1)
  1. JAQINUS [Suspect]
     Active Substance: TOFACITINIB CITRATE

REACTIONS (2)
  - Condition aggravated [Unknown]
  - Renal failure [Unknown]
